FAERS Safety Report 7985661-2 (Version None)
Quarter: 2011Q4

REPORT INFORMATION
  Report Type: 
  Country: None (occurrence: None)
  Receive Date: 20111216
  Receipt Date: 20111208
  Transmission Date: 20120403
  Serious: Yes (Other)
  Sender: FDA-Public Use
  Company Number: FR-BRISTOL-MYERS SQUIBB COMPANY-16258956

PATIENT
  Age: 49 Year
  Sex: Female
  Weight: 72 kg

DRUGS (1)
  1. IPILIMUMAB [Suspect]
     Indication: METASTATIC MALIGNANT MELANOMA
     Dosage: 4 INFUSION,31OCT2011:4TH INF,IV,DOSE:219MG.
     Route: 042

REACTIONS (2)
  - GASTRODUODENITIS [None]
  - NEOPLASM MALIGNANT [None]
